FAERS Safety Report 24312168 (Version 1)
Quarter: 2024Q3

REPORT INFORMATION
  Report Type: Spontaneous
  Country: IN (occurrence: IN)
  Receive Date: 20240912
  Receipt Date: 20240912
  Transmission Date: 20241017
  Serious: Yes (Death, Other)
  Sender: DR REDDYS
  Company Number: IN-RDY-SPO/IND/24/0013217

PATIENT
  Sex: Female

DRUGS (2)
  1. AZACITIDINE [Suspect]
     Active Substance: AZACITIDINE
     Indication: Acute myeloid leukaemia
  2. CYTARABINE [Suspect]
     Active Substance: CYTARABINE
     Indication: Pneumonia fungal
     Dosage: LOW-DOSE

REACTIONS (3)
  - Sepsis [Fatal]
  - Pneumonia fungal [Unknown]
  - Exposure during pregnancy [Unknown]
